FAERS Safety Report 15449168 (Version 1)
Quarter: 2018Q3

REPORT INFORMATION
  Report Type: Report from Study
  Country: None (occurrence: BR)
  Receive Date: 20180930
  Receipt Date: 20180930
  Transmission Date: 20181010
  Serious: Yes (Other)
  Sender: FDA-Public Use
  Company Number: BR-ABBVIE-18K-020-2503316-00

PATIENT
  Sex: Female
  Weight: 70 kg

DRUGS (4)
  1. HYDROCHLOROTHIAZIDE. [Concomitant]
     Active Substance: HYDROCHLOROTHIAZIDE
     Indication: HYPERTENSION
  2. HUMIRA [Suspect]
     Active Substance: ADALIMUMAB
     Indication: RHEUMATOID ARTHRITIS
     Route: 058
     Dates: start: 20140101
  3. LOSARTAN. [Concomitant]
     Active Substance: LOSARTAN
     Indication: HYPERTENSION
  4. SIMVATATINE [Concomitant]
     Indication: BLOOD CHOLESTEROL INCREASED

REACTIONS (10)
  - Arthritis [Unknown]
  - Loss of personal independence in daily activities [Recovered/Resolved]
  - Gait inability [Recovered/Resolved]
  - Renal cyst [Not Recovered/Not Resolved]
  - Liver disorder [Not Recovered/Not Resolved]
  - Weight abnormal [Unknown]
  - Hepatic steatosis [Not Recovered/Not Resolved]
  - Posture abnormal [Recovered/Resolved]
  - Intervertebral disc protrusion [Recovered/Resolved]
  - Intervertebral disc protrusion [Unknown]

NARRATIVE: CASE EVENT DATE: 2018
